FAERS Safety Report 7124465-X (Version None)
Quarter: 2010Q4

REPORT INFORMATION
  Report Type: 
  Country: None (occurrence: None)
  Receive Date: 20101126
  Receipt Date: 20101116
  Transmission Date: 20110411
  Serious: Yes (Hospitalization)
  Sender: FDA-Public Use
  Company Number: ES-ELI_LILLY_AND_COMPANY-ES201011004699

PATIENT
  Sex: Female
  Weight: 52 kg

DRUGS (6)
  1. FORTEO [Suspect]
     Indication: OSTEOPOROSIS
     Dosage: 20 UG, DAILY (1/D)
     Route: 058
     Dates: start: 20090201, end: 20100901
  2. MANIDON [Concomitant]
     Indication: CARDIAC DISORDER
     Dosage: 0.5 D/F, DAILY (1/D)
     Route: 048
  3. TROMALYT [Concomitant]
     Indication: CARDIAC DISORDER
     Dosage: 1 D/F, DAILY (1/D)
     Route: 048
  4. BISOPROLOL FUMARATE [Concomitant]
     Indication: CARDIAC DISORDER
     Dosage: 1 D/F, DAILY (1/D)
     Route: 048
  5. LANSOPRAZOL [Concomitant]
     Dosage: 1 D/F, DAILY (1/D)
     Route: 048
  6. HIBOR [Concomitant]
     Dosage: 1 D/F, DAILY (1/D)
     Route: 058

REACTIONS (1)
  - DEVICE RELATED INFECTION [None]
